FAERS Safety Report 15129164 (Version 1)
Quarter: 2018Q3

REPORT INFORMATION
  Report Type: Spontaneous
  Country: US (occurrence: US)
  Receive Date: 20180711
  Receipt Date: 20180711
  Transmission Date: 20181010
  Serious: No
  Sender: FDA-Public Use
  Company Number: US-PFIZER INC-2018277701

PATIENT
  Age: 86 Year
  Sex: Female

DRUGS (2)
  1. VICOPROFEN [Concomitant]
     Active Substance: HYDROCODONE BITARTRATE\IBUPROFEN
     Indication: BACK PAIN
     Dosage: 7.5 MG, UNK
  2. IBRANCE [Suspect]
     Active Substance: PALBOCICLIB
     Dosage: 125 MG, 1X/DAY
     Route: 048
     Dates: start: 20180702

REACTIONS (5)
  - Dizziness [Unknown]
  - Hypersensitivity [Unknown]
  - Paraesthesia [Unknown]
  - Asthenia [Unknown]
  - Nausea [Unknown]
